FAERS Safety Report 4388577-6 (Version None)
Quarter: 2004Q2

REPORT INFORMATION
  Report Type: 
  Country: None (occurrence: None)
  Receive Date: 20040628
  Receipt Date: 20040329
  Transmission Date: 20050107
  Serious: Yes (Hospitalization, Other)
  Sender: FDA-Public Use
  Company Number: 2004S1000392

PATIENT
  Age: 59 Year
  Sex: Male

DRUGS (5)
  1. LISINOPRIL [Suspect]
     Indication: HYPERTENSION
     Dosage: 40 MG QD, ORAL
     Route: 048
     Dates: start: 20040127, end: 20040208
  2. METOPROLOL (50 MG QD) [Concomitant]
  3. ATORVASTATIN(40 MG QD) [Concomitant]
  4. CARBAMEZEPINE SLOW-RELEASE (200 MG BID) [Concomitant]
  5. FOLIC ACID [Concomitant]

REACTIONS (3)
  - BLOOD PRESSURE INCREASED [None]
  - CEREBROVASCULAR ACCIDENT [None]
  - MIGRAINE [None]
